FAERS Safety Report 4545865-8 (Version None)
Quarter: 2005Q1

REPORT INFORMATION
  Report Type: 
  Country: None (occurrence: None)
  Receive Date: 20050104
  Receipt Date: 20050104
  Transmission Date: 20050727
  Serious: Yes (Hospitalization)
  Sender: FDA-Public Use
  Company Number: None

PATIENT
  Age: 51 Year
  Sex: Male
  Weight: 66 kg

DRUGS (6)
  1. REOPRO [Suspect]
     Indication: CATHETERISATION CARDIAC
     Dosage: 9MG/250ML @ 14ML/H X 12H
     Dates: start: 20041121
  2. REOPRO [Suspect]
     Indication: CORONARY ANGIOPLASTY
     Dosage: 9MG/250ML @ 14ML/H X 12H
     Dates: start: 20041121
  3. REOPRO [Suspect]
     Indication: CORONARY ARTERIAL STENT INSERTION
     Dosage: 9MG/250ML @ 14ML/H X 12H
     Dates: start: 20041121
  4. PLAQUENIL [Concomitant]
  5. FOSAMAX [Concomitant]
  6. ADVAIR DISKUS 100/50 [Concomitant]

REACTIONS (2)
  - PLATELET COUNT DECREASED [None]
  - POST PROCEDURAL COMPLICATION [None]
